FAERS Safety Report 23037236 (Version 1)
Quarter: 2023Q4

REPORT INFORMATION
  Report Type: Spontaneous
  Country: IE (occurrence: IE)
  Receive Date: 20231006
  Receipt Date: 20231006
  Transmission Date: 20240109
  Serious: Yes (Death, Other)
  Sender: FDA-Public Use
  Company Number: IE-GILEAD-2023-0645668

PATIENT
  Age: 61 Year
  Sex: Male

DRUGS (3)
  1. AMPHOTERICIN B [Suspect]
     Active Substance: AMPHOTERICIN B
     Indication: Aspergillus infection
     Route: 065
  2. VORICONAZOLE [Suspect]
     Active Substance: VORICONAZOLE
     Indication: Aspergillus infection
     Dosage: 6 MG/KG, EVERY 12 HOURS (FOR THE FIRST 24 HOURS)
     Route: 042
  3. VORICONAZOLE [Suspect]
     Active Substance: VORICONAZOLE
     Dosage: 4 MG/KG, EVERY 12 HOURS (FOR THE FIRST 24 HOURS)
     Route: 042

REACTIONS (2)
  - Death [Fatal]
  - Treatment failure [Unknown]
